FAERS Safety Report 5080880-X (Version None)
Quarter: 2006Q3

REPORT INFORMATION
  Report Type: 
  Country: None (occurrence: None)
  Receive Date: 20060811
  Receipt Date: 20060801
  Transmission Date: 20061208
  Serious: Yes (Other)
  Sender: FDA-Public Use
  Company Number: 2006094833

PATIENT
  Sex: Male
  Weight: 90.7194 kg

DRUGS (12)
  1. ZITHROMAX [Suspect]
     Indication: LYME DISEASE
     Dosage: ORAL, INTRAVENOUS
     Route: 048
  2. NEURONTIN [Suspect]
     Indication: NEUROPATHY
     Dosage: 1200 MG, ORAL
     Route: 048
  3. LYRICA [Suspect]
     Indication: NEUROPATHY
     Dosage: 100 MG (100 MG, EVERYDAY)
     Dates: start: 20060101, end: 20060731
  4. ZOLOFT [Suspect]
     Indication: ANXIETY
     Dosage: 200 MG (200 MG, EVERYDAY)
     Dates: start: 20060101
  5. ZOLOFT [Suspect]
     Indication: DEPRESSED MOOD
     Dosage: 200 MG (200 MG, EVERYDAY)
     Dates: start: 20060101
  6. BENADRYL [Suspect]
     Indication: ADVERSE DRUG REACTION
     Dates: start: 20060101
  7. ROCEPHIN [Suspect]
     Indication: LYME DISEASE
  8. HYOSCYAMINE (HYOSCYAMINE) [Concomitant]
     Indication: ILEOSTOMY
  9. VALIUM [Concomitant]
  10. EXTRA STRENGTH TYLENOL [Concomitant]
  11. KLONOPIN [Concomitant]
  12. VISTARIL (HYDROXYZINE EMBONATE) [Concomitant]

REACTIONS (13)
  - ANXIETY [None]
  - BLOOD PRESSURE INCREASED [None]
  - DEPRESSED LEVEL OF CONSCIOUSNESS [None]
  - DEPRESSED MOOD [None]
  - DRUG EFFECT DECREASED [None]
  - DRUG INEFFECTIVE [None]
  - HALLUCINATION [None]
  - HEADACHE [None]
  - HEART RATE INCREASED [None]
  - HEPATIC ENZYME INCREASED [None]
  - PERSONALITY CHANGE [None]
  - RESTLESSNESS [None]
  - VOMITING [None]
